FAERS Safety Report 8415278-7 (Version None)
Quarter: 2012Q2

REPORT INFORMATION
  Report Type: 
  Country: None (occurrence: None)
  Receive Date: 20120323
  Receipt Date: 20111205
  Transmission Date: 20120825
  Serious: Yes (Hospitalization)
  Sender: FDA-Public Use
  Company Number: 163-21880-11121053

PATIENT
  Age: 70 Year
  Sex: Male

DRUGS (11)
  1. OMEGA-3 FISH OIL (OMEGA-3 TRIGLYCERIDES) (UNKNOWN) [Concomitant]
  2. CADUET (CADUET) (UNKNOWN) [Concomitant]
  3. LENALIDOMIDE [Suspect]
     Indication: PARAPROTEINAEMIA
     Dosage: 25 MG, 21 CAPS, PO
     Route: 048
     Dates: start: 20110804, end: 20110825
  4. RAMIPRIL [Concomitant]
  5. PAROXETINE HCL [Concomitant]
  6. VITAMIN D 3 (COLECALCIFEROL) (UNKNOWN) [Concomitant]
  7. ONGLYZA (SAXAGLIPTIN HYDROCHLORIDE) (UNKNOWN) [Concomitant]
  8. CLONIDINE HCL (CLONIDINE HYDROCHLORIDE) (UNKNOWN) [Concomitant]
  9. TAMSULOSIN HCL (TAMSULOSIN HYDROCHLORIDE) (UNKNOWN) [Concomitant]
  10. PACKED RED BLOOD CELLS (RED BLOOD CELLS) (UNKNOWN) [Concomitant]
  11. DEXAMETHASONE [Concomitant]

REACTIONS (1)
  - RENAL FAILURE ACUTE [None]
